FAERS Safety Report 13721396 (Version 1)
Quarter: 2017Q3

REPORT INFORMATION
  Report Type: Report from Study
  Country: BR (occurrence: BR)
  Receive Date: 20170706
  Receipt Date: 20170706
  Transmission Date: 20171127
  Serious: Yes (Other)
  Sender: FDA-Public Use
  Company Number: PHHY2017BR097964

PATIENT
  Sex: Male
  Weight: 110 kg

DRUGS (3)
  1. DIOVAN HCT [Suspect]
     Active Substance: HYDROCHLOROTHIAZIDE\VALSARTAN
     Indication: HYPERTENSION
     Dosage: 1 DF (HYDROCHLOROTHIAZIDE 12.5 MG/ VALSARTAN 320 MG), QD
     Route: 048
  2. DIOVAN [Suspect]
     Active Substance: VALSARTAN
     Indication: HYPERTENSION
     Dosage: UNK (STARTED WITH DIOVAN WEAKER)
     Route: 065
  3. DIOVAN [Suspect]
     Active Substance: VALSARTAN
     Dosage: 80 OT, UNK
     Route: 065

REACTIONS (7)
  - Cold sweat [Unknown]
  - Syncope [Unknown]
  - Blood pressure increased [Recovering/Resolving]
  - Loss of consciousness [Unknown]
  - Dizziness [Recovered/Resolved]
  - Retching [Unknown]
  - Fall [Unknown]
